FAERS Safety Report 9125913 (Version 2)
Quarter: 2013Q2

REPORT INFORMATION
  Report Type: Spontaneous
  Country: GB (occurrence: GB)
  Receive Date: 20130121
  Receipt Date: 20130620
  Transmission Date: 20140414
  Serious: Yes (Other)
  Sender: FDA-Public Use
  Company Number: GB-MYLANLABS-2013S1000492

PATIENT
  Age: 16 Year
  Sex: Female
  Weight: 53.6 kg

DRUGS (19)
  1. ONDANSETRON [Suspect]
     Indication: PROPHYLAXIS OF NAUSEA AND VOMITING
     Route: 048
     Dates: start: 20120417, end: 20120417
  2. ONDANSETRON [Suspect]
     Indication: PROPHYLAXIS OF NAUSEA AND VOMITING
     Route: 048
     Dates: start: 20120418, end: 20120420
  3. APREPITANT [Suspect]
     Indication: PROPHYLAXIS OF NAUSEA AND VOMITING
     Route: 048
     Dates: start: 20120417, end: 20120417
  4. APREPITANT [Suspect]
     Indication: PROPHYLAXIS OF NAUSEA AND VOMITING
     Route: 048
     Dates: start: 20120418, end: 20120419
  5. CISPLATIN [Suspect]
     Indication: OSTEOSARCOMA
     Route: 042
     Dates: start: 20120417, end: 20120420
  6. DEXAMETHASONE [Suspect]
     Indication: PROPHYLAXIS OF NAUSEA AND VOMITING
     Route: 041
     Dates: start: 20120417, end: 20120417
  7. DEXAMETHASONE [Suspect]
     Indication: PROPHYLAXIS OF NAUSEA AND VOMITING
     Route: 042
     Dates: start: 20120418, end: 20120420
  8. DOXORUBICIN [Suspect]
     Indication: OSTEOSARCOMA
     Route: 042
     Dates: start: 20120417, end: 20120419
  9. ACETAMINOPHEN [Concomitant]
     Indication: ANALGESIC THERAPY
     Dates: start: 20120413, end: 20120418
  10. DIAZEPAM [Concomitant]
     Indication: SEDATION
     Dates: start: 20120424
  11. DIHYDROCODEINE [Concomitant]
     Indication: PAIN MANAGEMENT
     Dates: start: 20120414, end: 20120415
  12. LACTULOSE [Concomitant]
     Indication: CONSTIPATION
     Dates: start: 20120418
  13. LACTULOSE [Concomitant]
     Indication: CONSTIPATION
     Dates: start: 20120419
  14. LACTULOSE [Concomitant]
     Indication: CONSTIPATION
     Dates: start: 20120420
  15. LEVOMEPROMAZINE [Concomitant]
     Indication: VOMITING
     Route: 042
     Dates: start: 20120419, end: 20120419
  16. METOCLOPRAMIDE [Concomitant]
     Indication: NAUSEA
     Dates: start: 20120419, end: 20120419
  17. METOCLOPRAMIDE [Concomitant]
     Indication: VOMITING
     Dates: start: 20120419, end: 20120419
  18. ONDANSETRON [Concomitant]
     Indication: NAUSEA
     Route: 042
     Dates: start: 20120414, end: 20120414
  19. TETRACAINE [Concomitant]
     Indication: ANALGESIC THERAPY
     Dates: start: 20120413, end: 20120413

REACTIONS (3)
  - Sinus arrhythmia [Recovered/Resolved]
  - Ventricular dyskinesia [Recovered/Resolved]
  - Electrocardiogram T wave inversion [Recovered/Resolved]
